FAERS Safety Report 9106404 (Version 3)
Quarter: 2013Q2

REPORT INFORMATION
  Report Type: Spontaneous
  Country: GB (occurrence: GB)
  Receive Date: 20130221
  Receipt Date: 20130429
  Transmission Date: 20140414
  Serious: Yes (Other)
  Sender: FDA-Public Use
  Company Number: PHFR2013GB001268

PATIENT
  Age: 62 Year
  Sex: Female

DRUGS (4)
  1. CLOZARIL [Suspect]
     Indication: SCHIZOPHRENIA
     Dosage: UNK
     Route: 048
     Dates: start: 20020920
  2. CLOZARIL [Suspect]
     Dosage: UNK
     Dates: start: 2004
  3. CLOZARIL [Suspect]
     Dosage: 175 MG, NOCTE
     Route: 048
     Dates: start: 20120717
  4. HYOSCINE HYDROBROMIDE [Concomitant]
     Indication: SALIVARY HYPERSECRETION
     Dosage: 300 MG, UNK
     Route: 048
     Dates: start: 20121029

REACTIONS (2)
  - White blood cell count increased [Recovered/Resolved]
  - Neutrophil count increased [Unknown]
